FAERS Safety Report 7590320-4 (Version None)
Quarter: 2011Q3

REPORT INFORMATION
  Report Type: 
  Country: None (occurrence: None)
  Receive Date: 20110705
  Receipt Date: 20110624
  Transmission Date: 20111222
  Serious: Yes (Other)
  Sender: FDA-Public Use
  Company Number: US-BAYER-2011-004871

PATIENT
  Age: 22 Year
  Sex: Female
  Weight: 83.9 kg

DRUGS (2)
  1. DROSPIRENONE AND ETHINYL ESTRADIOL [Suspect]
     Indication: PRODUCT USED FOR UNKNOWN INDICATION
     Route: 048
  2. YASMIN [Suspect]
     Dosage: UNK
     Dates: start: 20040101, end: 20070101

REACTIONS (5)
  - EMOTIONAL DISTRESS [None]
  - INJURY [None]
  - CHOLECYSTITIS [None]
  - GALLBLADDER DISORDER [None]
  - PAIN [None]
